FAERS Safety Report 5717952-X (Version None)
Quarter: 2008Q2

REPORT INFORMATION
  Report Type: 
  Country: None (occurrence: None)
  Receive Date: 20080425
  Receipt Date: 20080418
  Transmission Date: 20081010
  Serious: Yes (Other)
  Sender: FDA-Public Use
  Company Number: A0698662A

PATIENT
  Sex: Female

DRUGS (12)
  1. ADVAIR HFA [Suspect]
     Indication: ASTHMA
     Route: 055
  2. SINGULAIR [Concomitant]
  3. ACIPHEX [Concomitant]
  4. POLYPHARMACY [Concomitant]
  5. HYDROCHLOROTHIAZIDE [Concomitant]
  6. ESTRADIOL [Concomitant]
  7. POTASSIUM GLUCONATE TAB [Concomitant]
  8. TRAMADOL HCL [Concomitant]
     Dosage: 50MG THREE TIMES PER DAY
  9. MULTI-VITAMIN [Concomitant]
  10. CALCIUM [Concomitant]
  11. METAMUCIL [Concomitant]
  12. MELOXICAM [Concomitant]

REACTIONS (3)
  - ASTHMA [None]
  - DYSPEPSIA [None]
  - STRESS [None]
